FAERS Safety Report 10768589 (Version 1)
Quarter: 2015Q1

REPORT INFORMATION
  Report Type: Spontaneous
  Country: US (occurrence: None)
  Receive Date: 20150205
  Receipt Date: 20150205
  Transmission Date: 20150721
  Serious: Yes (Death)
  Sender: FDA-Public Use
  Company Number: None

PATIENT
  Age: 41 Year
  Sex: Female
  Weight: 76.25 kg

DRUGS (13)
  1. WARFARIN [Concomitant]
     Active Substance: WARFARIN
  2. SPIRONOLACTONE. [Concomitant]
     Active Substance: SPIRONOLACTONE
  3. TRACLEER [Suspect]
     Active Substance: BOSENTAN\BOSENTAN MONOHYDRATE
     Indication: PULMONARY ARTERIAL HYPERTENSION
     Dosage: UNCLEAR DURATION
     Route: 048
  4. COREG [Concomitant]
     Active Substance: CARVEDILOL
  5. BUMETAMIDE [Concomitant]
  6. QVAR [Concomitant]
     Active Substance: BECLOMETHASONE DIPROPIONATE
  7. RITUXAN [Concomitant]
     Active Substance: RITUXIMAB
  8. PRAVASTATIN [Concomitant]
     Active Substance: PRAVASTATIN\PRAVASTATIN SODIUM
  9. INHALED ILOPROST [Concomitant]
  10. SILDENAFIL. [Concomitant]
     Active Substance: SILDENAFIL
  11. PREDNISONE. [Concomitant]
     Active Substance: PREDNISONE
  12. LISINOPRIL. [Concomitant]
     Active Substance: LISINOPRIL
  13. DIURETICS [Concomitant]
     Active Substance: UNSPECIFIED INGREDIENT

REACTIONS (2)
  - Apnoea [None]
  - Snoring [None]

NARRATIVE: CASE EVENT DATE: 20141216
